FAERS Safety Report 11045634 (Version 3)
Quarter: 2015Q4

REPORT INFORMATION
  Report Type: Spontaneous
  Country: US (occurrence: US)
  Receive Date: 20150417
  Receipt Date: 20151014
  Transmission Date: 20160304
  Serious: No
  Sender: FDA-Public Use
  Company Number: US-GLAXOSMITHKLINE-US2015GSK051123

PATIENT
  Sex: Female

DRUGS (2)
  1. TANZEUM [Suspect]
     Active Substance: ALBIGLUTIDE
     Indication: TYPE 2 DIABETES MELLITUS
     Dosage: 30 MG, WE
     Route: 042
     Dates: start: 201503
  2. TANZEUM [Suspect]
     Active Substance: ALBIGLUTIDE
     Dosage: UNK

REACTIONS (4)
  - Intentional device misuse [Unknown]
  - Exposure via direct contact [Unknown]
  - Product quality issue [Unknown]
  - Drug dose omission [Unknown]
